FAERS Safety Report 13575556 (Version 1)
Quarter: 2017Q2

REPORT INFORMATION
  Report Type: Spontaneous
  Country: US (occurrence: US)
  Receive Date: 20170523
  Receipt Date: 20170523
  Transmission Date: 20170830
  Serious: Yes (Other)
  Sender: FDA-Public Use
  Company Number: None

PATIENT
  Age: 63 Year
  Sex: Male
  Weight: 113.5 kg

DRUGS (2)
  1. IMPRAMINE [Concomitant]
  2. IMPRAMINE [Suspect]
     Active Substance: IMIPRAMINE

REACTIONS (1)
  - Syncope [None]

NARRATIVE: CASE EVENT DATE: 19530419
